FAERS Safety Report 9988643 (Version 1)
Quarter: 2014Q1

REPORT INFORMATION
  Report Type: Spontaneous
  Country: TR (occurrence: TR)
  Receive Date: 20140310
  Receipt Date: 20140310
  Transmission Date: 20141002
  Serious: Yes (Life-Threatening, Hospitalization)
  Sender: FDA-Public Use
  Company Number: TR-RANBAXY-2014R1-78792

PATIENT
  Age: 24 Month
  Sex: Male

DRUGS (2)
  1. CEFTRIAXONE [Suspect]
     Indication: PRODUCT USED FOR UNKNOWN INDICATION
     Dosage: 1.5 MG/KG/MIN, SINGLE
  2. CEFUROXIME [Suspect]
     Indication: PHARYNGITIS
     Dosage: UNK
     Route: 048

REACTIONS (2)
  - Anaphylactic reaction [Recovering/Resolving]
  - Drug interaction [Recovering/Resolving]
